FAERS Safety Report 9036537 (Version 1)
Quarter: 2013Q1

REPORT INFORMATION
  Report Type: Spontaneous
  Country: US (occurrence: None)
  Receive Date: 20130123
  Receipt Date: 20130123
  Transmission Date: 20140127
  Serious: Yes (Hospitalization)
  Sender: FDA-Public Use
  Company Number: None

PATIENT
  Sex: Female
  Weight: 80 kg

DRUGS (1)
  1. LISINOPRIL, 5 MG [Suspect]
     Indication: HYPERTENSION
     Dates: start: 20120801, end: 20130120

REACTIONS (9)
  - Back pain [None]
  - Pain in extremity [None]
  - Local swelling [None]
  - Fall [None]
  - Dizziness [None]
  - Vomiting [None]
  - Paraesthesia [None]
  - Protein total decreased [None]
  - Alopecia [None]
